FAERS Safety Report 25286968 (Version 2)
Quarter: 2025Q2

REPORT INFORMATION
  Report Type: Report from Study
  Country: US (occurrence: US)
  Receive Date: 20250509
  Receipt Date: 20250609
  Transmission Date: 20250717
  Serious: No
  Sender: AVERITAS
  Company Number: US-GRUNENTHAL-2025-106101

PATIENT
  Sex: Female

DRUGS (1)
  1. QUTENZA [Suspect]
     Active Substance: CAPSAICIN
     Indication: Diabetic neuropathy
     Route: 003
     Dates: start: 20250414, end: 20250414

REACTIONS (6)
  - Application site pain [Unknown]
  - Skin odour abnormal [Unknown]
  - Malaise [Unknown]
  - Pyrexia [Unknown]
  - Feeling abnormal [Unknown]
  - Application site pain [Unknown]

NARRATIVE: CASE EVENT DATE: 20250401
